FAERS Safety Report 8070649-6 (Version None)
Quarter: 2012Q1

REPORT INFORMATION
  Report Type: 
  Country: None (occurrence: None)
  Receive Date: 20120125
  Receipt Date: 20120119
  Transmission Date: 20120608
  Serious: Yes (Other)
  Sender: FDA-Public Use
  Company Number: PHEH2011US07339

PATIENT
  Sex: Female
  Weight: 140 kg

DRUGS (16)
  1. PHENERGAN [Concomitant]
     Dosage: 25 MG, UNK
     Route: 048
  2. ADVAIR DISKUS 100/50 [Concomitant]
     Dosage: 100/50 IN
  3. VALIUM [Concomitant]
     Dosage: 10 MG, UNK
     Route: 048
  4. SINGULAIR [Concomitant]
     Dosage: 10 MG, UNK
     Route: 048
  5. SEROQUEL [Concomitant]
     Dosage: 100 MG, UNK
     Route: 048
  6. NEURONTIN [Concomitant]
     Dosage: 300 MG, UNK
     Route: 048
  7. FOLIC ACID [Concomitant]
     Route: 048
  8. CELEBREX [Concomitant]
     Dosage: 200 MG, UNK
     Route: 048
  9. EXJADE [Suspect]
     Dosage: 1500 MG, DAILY
     Route: 048
  10. FLONASE [Concomitant]
     Dosage: 0.05 %, UNK
  11. ZYRTEC [Concomitant]
     Dosage: 10 MG, UNK
     Route: 048
  12. MIRALAX [Concomitant]
  13. LORTAB [Concomitant]
     Dosage: 5 DF, UNK
     Route: 048
  14. EXJADE [Suspect]
     Indication: IRON OVERLOAD
     Dosage: 2 DF, DAILY
     Route: 048
  15. METAMUCIL-2 [Concomitant]
     Dosage: 0.52 G, UNK
     Route: 048
  16. ASPIRIN [Concomitant]
     Dosage: 81 MG, UNK
     Route: 048

REACTIONS (7)
  - DYSPNOEA [None]
  - MALAISE [None]
  - ABDOMINAL DISTENSION [None]
  - WEIGHT INCREASED [None]
  - NAUSEA [None]
  - FLUID RETENTION [None]
  - THROAT IRRITATION [None]
